FAERS Safety Report 5638265-0 (Version None)
Quarter: 2008Q1

REPORT INFORMATION
  Report Type: 
  Country: None (occurrence: None)
  Receive Date: 20080226
  Receipt Date: 20080214
  Transmission Date: 20080703
  Serious: Yes (Life-Threatening)
  Sender: FDA-Public Use
  Company Number: CH-BAYER-200813159GPV

PATIENT
  Age: 82 Year
  Sex: Male

DRUGS (1)
  1. ASPIRIN [Suspect]
     Indication: DRUG USE FOR UNKNOWN INDICATION
     Route: 048

REACTIONS (3)
  - ALTERED STATE OF CONSCIOUSNESS [None]
  - CEREBRAL HAEMORRHAGE [None]
  - VOMITING [None]
